FAERS Safety Report 4998422-3 (Version None)
Quarter: 2006Q2

REPORT INFORMATION
  Report Type: 
  Country: None (occurrence: None)
  Receive Date: 20060508
  Receipt Date: 20060427
  Transmission Date: 20061013
  Serious: Yes (Other)
  Sender: FDA-Public Use
  Company Number: 2006053783

PATIENT
  Age: 73 Year
  Sex: Male

DRUGS (6)
  1. SPIRONOLACTONE [Suspect]
     Indication: ILL-DEFINED DISORDER
     Dosage: 25 MG (25 MG, ONCE DAILY INTERVAL: EVERY DAY), UNKNOWN
     Route: 065
  2. LISINOPRIL [Suspect]
     Indication: ILL-DEFINED DISORDER
     Dosage: 5 MG (5 MG, ONCE DAILY INTERVAL: EVERY DAY), UNKNOWN
     Route: 065
  3. DIGOXIN [Suspect]
     Indication: ILL-DEFINED DISORDER
     Dosage: 125 MCG (125 MCG, ONCE DAILY INTERVAL: EVERY DAY), UNKNOWN
     Route: 065
  4. FUROSEMIDE [Suspect]
     Indication: ILL-DEFINED DISORDER
     Dosage: 80 MG (80 MG, ONCE DAILY INTERVAL: EVERY DAY), UNKNOWN
     Route: 065
  5. SIMVASTATIN [Suspect]
     Indication: ILL-DEFINED DISORDER
     Dosage: 20 MG (20 MG, ONCE DAILY INTERVAL: EVERY DAY), UNKNOWN
     Route: 065
  6. WARFARIN SODIUM [Suspect]
     Indication: ILL-DEFINED DISORDER
     Dosage: UNKNOWN
     Route: 065

REACTIONS (4)
  - CREPITATIONS [None]
  - DIFFICULTY IN WALKING [None]
  - GENERAL PHYSICAL HEALTH DETERIORATION [None]
  - OEDEMA PERIPHERAL [None]
